FAERS Safety Report 7708193-5 (Version None)
Quarter: 2011Q3

REPORT INFORMATION
  Report Type: 
  Country: None (occurrence: None)
  Receive Date: 20110825
  Receipt Date: 20110815
  Transmission Date: 20111222
  Serious: No
  Sender: FDA-Public Use
  Company Number: US-BIOGENIDEC-2011BI031202

PATIENT
  Age: 55 Year
  Sex: Female

DRUGS (3)
  1. TYSABRI [Suspect]
     Indication: MULTIPLE SCLEROSIS
     Route: 042
     Dates: start: 20110516
  2. BOTOX [Concomitant]
     Indication: MUSCLE SPASMS
  3. FENTANYL-100 [Concomitant]
     Indication: ARTHRALGIA

REACTIONS (4)
  - URINARY TRACT INFECTION [None]
  - ASTHENIA [None]
  - BAND SENSATION [None]
  - MUSCLE SPASMS [None]
